FAERS Safety Report 11814533 (Version 1)
Quarter: 2015Q4

REPORT INFORMATION
  Report Type: Spontaneous
  Country: US (occurrence: None)
  Receive Date: 20151208
  Receipt Date: 20151208
  Transmission Date: 20160305
  Serious: Yes (Disabling)
  Sender: FDA-Public Use
  Company Number: None

PATIENT
  Age: 30 Year
  Sex: Female
  Weight: 113.4 kg

DRUGS (2)
  1. NEXPLANON [Suspect]
     Active Substance: ETONOGESTREL
  2. IRON SUPPLEMENTS [Concomitant]
     Active Substance: IRON

REACTIONS (10)
  - Back pain [None]
  - Abdominal pain upper [None]
  - Depression [None]
  - Mood swings [None]
  - Anxiety [None]
  - Menstruation irregular [None]
  - Dysmenorrhoea [None]
  - Pain [None]
  - Menorrhagia [None]
  - Weight increased [None]
